FAERS Safety Report 9122099 (Version 2)
Quarter: 2013Q1

REPORT INFORMATION
  Report Type: Spontaneous
  Country: LU (occurrence: LU)
  Receive Date: 20130114
  Receipt Date: 20130117
  Transmission Date: 20140127
  Serious: Yes (Death, Hospitalization)
  Sender: FDA-Public Use
  Company Number: LU-PFIZER INC-2013008558

PATIENT
  Age: 68 Year
  Sex: Female

DRUGS (13)
  1. LIPITOR [Suspect]
     Dosage: 80 MG, 1X/DAY
     Route: 048
     Dates: start: 2009, end: 20120110
  2. MEDROL [Suspect]
     Dosage: 4 MG, ALTERNATE DAY
     Route: 048
  3. OXAZEPAM [Suspect]
     Dosage: 15 MG, 2X/DAY
     Route: 048
  4. ASAFLOW [Suspect]
     Dosage: 80 MG, 1X/DAY
     Route: 048
  5. BRONCHOSEDAL [Suspect]
     Dosage: UNK, AS NEEDED
     Route: 048
  6. BURINEX [Suspect]
     Dosage: 1 MG, 1X/DAY
     Route: 048
  7. VITAMIN D3 [Suspect]
     Dosage: 1 DF, MONTHLY
     Route: 048
  8. COAPROVEL [Suspect]
     Dosage: [IRBESARTAN 300 MG]/ [HYDROCHLOROTHIAZIDE 25 MG], 1X/DAY
     Route: 048
  9. SELOZOK [Suspect]
     Dosage: 200 MG, 1X/DAY
     Route: 048
  10. AURORIX [Suspect]
     Dosage: 150 MG, 3X/DAY
     Route: 048
  11. DOCOMEPRA [Suspect]
     Dosage: 20 MG, 1X/DAY
     Route: 048
  12. SINEQUAN [Concomitant]
     Indication: DEPRESSION
     Dosage: 50 MG, 1X/DAY
     Route: 048
     Dates: start: 20111205, end: 20111220
  13. LYRICA [Concomitant]
     Indication: DEPRESSION
     Dosage: 75 MG, 2X/DAY
     Route: 048
     Dates: end: 20111220

REACTIONS (14)
  - Renal failure [Fatal]
  - Cirrhosis alcoholic [Fatal]
  - Dyspnoea [Fatal]
  - Rhabdomyolysis [Recovering/Resolving]
  - Lacunar infarction [Unknown]
  - Cardiac disorder [Unknown]
  - Cyanosis [Unknown]
  - Hypothermia [Unknown]
  - Hypothyroidism [Unknown]
  - Fall [Unknown]
  - Oedema [Unknown]
  - Ocular icterus [Unknown]
  - Skin discolouration [Unknown]
  - Cough [Unknown]
